FAERS Safety Report 8062510-8 (Version None)
Quarter: 2012Q1

REPORT INFORMATION
  Report Type: 
  Country: None (occurrence: None)
  Receive Date: 20120117
  Receipt Date: 20120109
  Transmission Date: 20120608
  Serious: Yes (Hospitalization)
  Sender: FDA-Public Use
  Company Number: DSA_48818_2012

PATIENT
  Sex: Female

DRUGS (8)
  1. LISOPRIL [Concomitant]
  2. ASPIRIN [Concomitant]
  3. XENAZINE [Suspect]
     Indication: TARDIVE DYSKINESIA
     Dosage: 12.5 MG TID, ORAL
     Route: 048
     Dates: start: 20110701
  4. SYNTHROID [Concomitant]
  5. ATENOLOL [Concomitant]
  6. VYTORIN [Concomitant]
  7. FERROUS SULFATE TAB [Concomitant]
  8. PREVACID [Concomitant]

REACTIONS (3)
  - DYSPNOEA [None]
  - URINARY TRACT INFECTION [None]
  - DRUG INEFFECTIVE [None]
